FAERS Safety Report 4608810-2 (Version None)
Quarter: 2005Q1

REPORT INFORMATION
  Report Type: 
  Country: None (occurrence: None)
  Receive Date: 20050311
  Receipt Date: 20050228
  Transmission Date: 20050727
  Serious: Yes (Other)
  Sender: FDA-Public Use
  Company Number: 430002M05JPN

PATIENT
  Age: 67 Year
  Sex: Female

DRUGS (5)
  1. NOVANTRONE [Suspect]
     Indication: LYMPHOMA
     Dosage: 8 MG/KG, 1 IN 1 DAYS
     Dates: start: 20040908
  2. LEUSTATIN [Suspect]
     Indication: LYMPHOMA
     Dosage: SEE IMAGE
     Route: 042
     Dates: start: 20040908, end: 20040910
  3. LEUSTATIN [Suspect]
     Indication: LYMPHOMA
     Dosage: SEE IMAGE
     Route: 042
     Dates: start: 20041001, end: 20041001
  4. LEUSTATIN [Suspect]
     Indication: LYMPHOMA
     Dosage: SEE IMAGE
     Route: 042
     Dates: start: 20041101, end: 20041101
  5. RITUXIMAB [Concomitant]

REACTIONS (1)
  - BONE MARROW DEPRESSION [None]
